FAERS Safety Report 8925658 (Version 1)
Quarter: 2012Q4

REPORT INFORMATION
  Report Type: 
  Country: US (occurrence: US)
  Receive Date: 20121126
  Receipt Date: 20121126
  Transmission Date: 20130627
  Serious: Yes (Hospitalization, Other)
  Sender: FDA-Public Use
  Company Number: US-ELI_LILLY_AND_COMPANY-US201211005204

PATIENT
  Age: 64 Year
  Sex: Female

DRUGS (8)
  1. CYMBALTA [Suspect]
     Indication: DEPRESSION
     Dosage: 60 mg, qd
     Dates: start: 2010
  2. CYMBALTA [Suspect]
     Dosage: 90 mg, qd
     Dates: start: 2011
  3. CYMBALTA [Suspect]
     Dosage: 120 mg, qd
     Dates: start: 201208
  4. FLUOXETIN [Concomitant]
  5. RETIN A [Concomitant]
  6. SPIRONOLACTON [Concomitant]
  7. VALIUM [Concomitant]
  8. CONCERTA [Concomitant]

REACTIONS (11)
  - Adrenal insufficiency [Unknown]
  - Renal impairment [Unknown]
  - Epinephrine decreased [Unknown]
  - Asthenia [Unknown]
  - Nephrolithiasis [Unknown]
  - Blood cortisol increased [Unknown]
  - Dry skin [Unknown]
  - Memory impairment [Unknown]
  - Insomnia [Unknown]
  - Counterfeit drug administered [Unknown]
  - Acne cystic [Unknown]
